FAERS Safety Report 17238637 (Version 1)
Quarter: 2020Q1

REPORT INFORMATION
  Report Type: Spontaneous
  Country: US (occurrence: US)
  Receive Date: 20200105
  Receipt Date: 20200105
  Transmission Date: 20200409
  Serious: Yes (Hospitalization)
  Sender: FDA-Public Use
  Company Number: None

PATIENT
  Age: 53 Year
  Sex: Female
  Weight: 63 kg

DRUGS (11)
  1. XELJANZ XR [Suspect]
     Active Substance: TOFACITINIB CITRATE
     Indication: RHEUMATOID ARTHRITIS
     Dosage: ?          QUANTITY:1 TABLET(S);?
     Route: 048
  2. FOLIC ACID. [Concomitant]
     Active Substance: FOLIC ACID
  3. CYMBALTA [Concomitant]
     Active Substance: DULOXETINE HYDROCHLORIDE
  4. COQ10 [Concomitant]
     Active Substance: UBIDECARENONE
  5. LOSARTAN. [Concomitant]
     Active Substance: LOSARTAN
  6. ONE-A-DAY NOS [Concomitant]
     Active Substance: MINERALS\VITAMINS
  7. MAGNESIUM .4 GRAMS [Concomitant]
     Active Substance: MAGNESIUM
  8. MELATONIN [Concomitant]
     Active Substance: MELATONIN
  9. FISH OIL [Concomitant]
     Active Substance: FISH OIL
  10. SIMVASTATIN. [Concomitant]
     Active Substance: SIMVASTATIN
  11. PRO OMEGA [Concomitant]

REACTIONS (7)
  - Diarrhoea [None]
  - Acquired diaphragmatic eventration [None]
  - Pneumonia [None]
  - Flatulence [None]
  - Abdominal distension [None]
  - Pneumoperitoneum [None]
  - Pleural effusion [None]

NARRATIVE: CASE EVENT DATE: 20190909
